FAERS Safety Report 9580263 (Version 1)
Quarter: 2013Q4

REPORT INFORMATION
  Report Type: Spontaneous
  Country: US (occurrence: None)
  Receive Date: 20131001
  Receipt Date: 20131001
  Transmission Date: 20140711
  Serious: Yes (Life-Threatening, Hospitalization)
  Sender: FDA-Public Use
  Company Number: None

PATIENT
  Age: 73 None
  Sex: Male
  Weight: 99.5 kg

DRUGS (1)
  1. PIPERACILLIN/TAZOBACTAM [Suspect]
     Indication: INFECTION
     Route: 042
     Dates: start: 20130625, end: 20130704

REACTIONS (2)
  - Mental status changes [None]
  - Thrombocytopenia [None]
